FAERS Safety Report 7395867-1 (Version None)
Quarter: 2011Q2

REPORT INFORMATION
  Report Type: 
  Country: None (occurrence: None)
  Receive Date: 20110405
  Receipt Date: 20110328
  Transmission Date: 20111010
  Serious: Yes (Hospitalization)
  Sender: FDA-Public Use
  Company Number: JP-BRISTOL-MYERS SQUIBB COMPANY-15530546

PATIENT
  Age: 42 Year
  Sex: Male

DRUGS (5)
  1. ABILIFY [Suspect]
     Indication: SCHIZOPHRENIA
     Dosage: 6MG/DAY,DOSE INCREASED TO 9MG,9MG:UNK-18AUG2010,THEN REDUCED TO 6 MG,6 MG:19AUG10-ONG.
     Route: 048
     Dates: start: 20060901
  2. INSULIN [Concomitant]
     Dosage: INJ
  3. HUMALOG [Concomitant]
     Dosage: INJ
  4. AMOBAN [Concomitant]
     Dosage: TAB
  5. LANTUS [Concomitant]
     Dosage: INJ

REACTIONS (2)
  - DIABETIC COMA [None]
  - HYPERGLYCAEMIA [None]
